FAERS Safety Report 5869486-X (Version None)
Quarter: 2008Q3

REPORT INFORMATION
  Report Type: 
  Country: None (occurrence: None)
  Receive Date: 20080829
  Receipt Date: 20080819
  Transmission Date: 20090109
  Serious: Yes (Other)
  Sender: FDA-Public Use
  Company Number: 237536J08USA

PATIENT
  Age: 42 Year
  Sex: Female

DRUGS (6)
  1. REBIF [Suspect]
     Indication: MULTIPLE SCLEROSIS
     Dosage: 44 MCG, 3 IN 1 WEEKS, SUBCUTANEOUS
     Route: 058
     Dates: start: 20080204, end: 20080820
  2. CLOZAPINE [Concomitant]
  3. LISINOPRIL [Concomitant]
  4. ATENOLOL [Concomitant]
  5. CLONAZEPAM [Concomitant]
  6. XALATAN [Concomitant]

REACTIONS (4)
  - RETINAL ANEURYSM [None]
  - RETINAL EXUDATES [None]
  - RETINAL HAEMORRHAGE [None]
  - TELANGIECTASIA [None]
